FAERS Safety Report 8333033-3 (Version None)
Quarter: 2012Q2

REPORT INFORMATION
  Report Type: 
  Country: None (occurrence: None)
  Receive Date: 20120503
  Receipt Date: 20120421
  Transmission Date: 20120825
  Serious: Yes (Other)
  Sender: FDA-Public Use
  Company Number: US-BRISTOL-MYERS SQUIBB COMPANY-16542078

PATIENT
  Age: 63 Year
  Sex: Male

DRUGS (1)
  1. ERBITUX [Suspect]

REACTIONS (8)
  - LUNG NEOPLASM MALIGNANT [None]
  - SKIN FISSURES [None]
  - MILIA [None]
  - BONE NEOPLASM MALIGNANT [None]
  - SKIN DISCOLOURATION [None]
  - DRY SKIN [None]
  - ACNE [None]
  - SCAB [None]
